FAERS Safety Report 5098337-9 (Version None)
Quarter: 2006Q3

REPORT INFORMATION
  Report Type: 
  Country: None (occurrence: None)
  Receive Date: 20060906
  Receipt Date: 20060831
  Transmission Date: 20061208
  Serious: Yes (Hospitalization)
  Sender: FDA-Public Use
  Company Number: US-JNJFOC-20060700231

PATIENT
  Sex: Male

DRUGS (14)
  1. REMICADE [Suspect]
     Indication: RHEUMATOID ARTHRITIS
  2. NIFEDIPINE [Concomitant]
  3. LEVOTHROID [Concomitant]
  4. ENALAPRIL [Concomitant]
  5. ATENOLOL [Concomitant]
  6. FUROSEMIDE [Concomitant]
  7. POTASSIUM [Concomitant]
  8. GLUCOPHAGE [Concomitant]
  9. FOLIC ACID [Concomitant]
  10. GLIPIZIDE [Concomitant]
  11. CALCIUM WITH VITAMIN D [Concomitant]
  12. VITAMIN E [Concomitant]
  13. METHOTREXATE [Concomitant]
  14. PROTONIX [Concomitant]

REACTIONS (1)
  - DIVERTICULITIS [None]
